FAERS Safety Report 8884084 (Version 1)
Quarter: 2012Q4

REPORT INFORMATION
  Report Type: 
  Country: US (occurrence: US)
  Receive Date: 20121102
  Receipt Date: 20121102
  Transmission Date: 20130627
  Serious: No
  Sender: FDA-Public Use
  Company Number: US-ASTRAZENECA-2012SE28137

PATIENT
  Age: 82 Year
  Sex: Female
  Weight: 76.7 kg

DRUGS (1)
  1. CRESTOR [Suspect]
     Route: 048

REACTIONS (3)
  - Onychoclasis [Unknown]
  - Hearing impaired [Unknown]
  - Ear pain [Unknown]
